FAERS Safety Report 9089043 (Version 1)
Quarter: 2013Q1

REPORT INFORMATION
  Report Type: Spontaneous
  Country: US (occurrence: US)
  Receive Date: 20130218
  Receipt Date: 20130218
  Transmission Date: 20140127
  Serious: No
  Sender: FDA-Public Use
  Company Number: US-ABBOTT-12P-163-0932013-00

PATIENT
  Sex: Male
  Weight: 105.78 kg

DRUGS (3)
  1. SIMCOR 500MG/20MG [Suspect]
     Indication: BLOOD CHOLESTEROL
     Dosage: 500/20 COUPLE OF YEARS
  2. AMBIEN [Concomitant]
     Indication: PRODUCT USED FOR UNKNOWN INDICATION
  3. ASA [Concomitant]
     Indication: PRODUCT USED FOR UNKNOWN INDICATION
     Dosage: AT NOON

REACTIONS (4)
  - Flushing [Not Recovered/Not Resolved]
  - Paraesthesia [Not Recovered/Not Resolved]
  - Insomnia [Not Recovered/Not Resolved]
  - Initial insomnia [Unknown]
